FAERS Safety Report 15088109 (Version 1)
Quarter: 2018Q2

REPORT INFORMATION
  Report Type: Report from Study
  Country: ZA (occurrence: ZA)
  Receive Date: 20180629
  Receipt Date: 20180629
  Transmission Date: 20180711
  Serious: Yes (Other)
  Sender: FDA-Public Use
  Company Number: ZA-ROCHE-2145657

PATIENT
  Age: 55 Year
  Sex: Female

DRUGS (1)
  1. MABTHERA [Suspect]
     Active Substance: RITUXIMAB
     Indication: RHEUMATOID ARTHRITIS
     Dosage: TWICE 15 DAYS APART EVERY 6 MONTHS
     Route: 042
     Dates: start: 20140401

REACTIONS (2)
  - Knee arthroplasty [Unknown]
  - Obesity [Unknown]

NARRATIVE: CASE EVENT DATE: 20170907
